FAERS Safety Report 5377486-1 (Version None)
Quarter: 2007Q3

REPORT INFORMATION
  Report Type: 
  Country: None (occurrence: None)
  Receive Date: 20070703
  Receipt Date: 20070621
  Transmission Date: 20080115
  Serious: Yes (Life-Threatening)
  Sender: FDA-Public Use
  Company Number: JP-ROCHE-504091

PATIENT
  Age: 74 Year
  Sex: Female

DRUGS (4)
  1. ROCALTROL [Suspect]
     Indication: OSTEOPOROSIS POSTMENOPAUSAL
     Route: 048
  2. EVISTA [Suspect]
     Indication: OSTEOPOROSIS POSTMENOPAUSAL
     Route: 048
     Dates: start: 20050127, end: 20070614
  3. GASTER [Suspect]
     Route: 065
  4. ZOLPIDEM [Suspect]
     Indication: DRUG USE FOR UNKNOWN INDICATION
     Route: 048

REACTIONS (1)
  - EMBOLISM VENOUS [None]
